FAERS Safety Report 17670775 (Version 2)
Quarter: 2020Q3

REPORT INFORMATION
  Report Type: Report from Study
  Country: US (occurrence: US)
  Receive Date: 20200415
  Receipt Date: 20200902
  Transmission Date: 20201102
  Serious: Yes (Other)
  Sender: FDA-Public Use
  Company Number: US-SA-2020SA096180

PATIENT

DRUGS (2)
  1. TERIFLUNOMIDE. [Suspect]
     Active Substance: TERIFLUNOMIDE
     Dosage: 14 MG, QD
     Route: 048
     Dates: start: 20200801
  2. TERIFLUNOMIDE. [Suspect]
     Active Substance: TERIFLUNOMIDE
     Indication: MULTIPLE SCLEROSIS
     Dosage: 14 MG, QD
     Route: 048
     Dates: start: 202001, end: 2020

REACTIONS (14)
  - Arthralgia [Recovering/Resolving]
  - Stress [Unknown]
  - Pain [Recovering/Resolving]
  - Pain in extremity [Recovering/Resolving]
  - Band sensation [Unknown]
  - Multiple sclerosis relapse [Recovering/Resolving]
  - Multiple sclerosis [Unknown]
  - Vomiting [Unknown]
  - Gait disturbance [Recovered/Resolved]
  - Neck pain [Unknown]
  - Head discomfort [Unknown]
  - Paraesthesia [Unknown]
  - Off label use [Unknown]
  - Bone pain [Recovering/Resolving]

NARRATIVE: CASE EVENT DATE: 2020
